FAERS Safety Report 6196009-0 (Version None)
Quarter: 2009Q2

REPORT INFORMATION
  Report Type: 
  Country: None (occurrence: None)
  Receive Date: 20090520
  Receipt Date: 20030822
  Transmission Date: 20091009
  Serious: Yes (Life-Threatening, Hospitalization)
  Sender: FDA-Public Use
  Company Number: NL-ROCHE-597864

PATIENT
  Sex: Male

DRUGS (3)
  1. CAPECITABINE [Suspect]
     Indication: COLORECTAL CANCER
     Route: 048
     Dates: end: 20030702
  2. PANTOZOL [Concomitant]
  3. LARGACTIL [Concomitant]

REACTIONS (3)
  - ABDOMINAL PAIN [None]
  - HICCUPS [None]
  - ILEUS PARALYTIC [None]
